FAERS Safety Report 7701677-5 (Version None)
Quarter: 2011Q3

REPORT INFORMATION
  Report Type: 
  Country: None (occurrence: None)
  Receive Date: 20110822
  Receipt Date: 20110812
  Transmission Date: 20111222
  Serious: Yes (Hospitalization)
  Sender: FDA-Public Use
  Company Number: US-AMGEN-USASP2011041192

PATIENT
  Sex: Female

DRUGS (4)
  1. SENSIPAR [Suspect]
     Indication: HYPERPARATHYROIDISM SECONDARY
     Dosage: 30 MG, UNK
     Dates: start: 20110301
  2. SENSIPAR [Suspect]
     Dosage: 45 MG, UNK
     Dates: start: 20110401
  3. SENSIPAR [Suspect]
     Dosage: 60 MG, UNK
     Dates: start: 20110401
  4. SENSIPAR [Suspect]
     Dosage: 15 MG, QD
     Dates: start: 20110201

REACTIONS (2)
  - PANCREATITIS [None]
  - BLOOD PARATHYROID HORMONE ABNORMAL [None]
